FAERS Safety Report 7547258-8 (Version None)
Quarter: 2011Q2

REPORT INFORMATION
  Report Type: 
  Country: None (occurrence: None)
  Receive Date: 20110614
  Receipt Date: 20110524
  Transmission Date: 20111010
  Serious: Yes (Other)
  Sender: FDA-Public Use
  Company Number: PHHY2011JP50778

PATIENT
  Age: 58 Year
  Sex: Female

DRUGS (1)
  1. FAMVIR [Suspect]
     Dosage: 1500 MG, UNK
     Route: 048
     Dates: start: 20110509, end: 20110510

REACTIONS (2)
  - DIZZINESS [None]
  - CHOKING SENSATION [None]
